FAERS Safety Report 18981485 (Version 1)
Quarter: 2021Q1

REPORT INFORMATION
  Report Type: Spontaneous
  Country: US (occurrence: US)
  Receive Date: 20210308
  Receipt Date: 20210308
  Transmission Date: 20210420
  Serious: No
  Sender: FDA-Public Use
  Company Number: None

PATIENT
  Age: 50 Year
  Sex: Male
  Weight: 78.9 kg

DRUGS (12)
  1. LISINOPRIL. [Suspect]
     Active Substance: LISINOPRIL
     Indication: PROPHYLAXIS
     Route: 048
  2. DOCUSATE 200 MG [Concomitant]
     Dates: start: 20200519, end: 20210308
  3. FLUVOXAMINE [Concomitant]
     Active Substance: FLUVOXAMINE
     Dates: start: 20200604, end: 20210308
  4. APIDRA INSULIN [Concomitant]
     Dates: start: 20200612, end: 20210308
  5. LORAZEPAM. [Concomitant]
     Active Substance: LORAZEPAM
     Dates: start: 20210104, end: 20210308
  6. FEXOFENADINE [Concomitant]
     Active Substance: FEXOFENADINE HYDROCHLORIDE
     Dates: start: 20200519, end: 20210308
  7. LEVOTHYROXINE 75 MCG [Concomitant]
     Active Substance: LEVOTHYROXINE
     Dates: start: 20200520, end: 20210308
  8. ATORVASTATIN 10 MG [Concomitant]
     Active Substance: ATORVASTATIN
     Dates: start: 20200520, end: 20210308
  9. DEPAKOTE 750 MG [Concomitant]
     Dates: start: 20200604, end: 20210308
  10. CHOLECALCIFEROL 400 UNITS [Concomitant]
     Dates: start: 20200519, end: 20210308
  11. LANTUS [Concomitant]
     Active Substance: INSULIN GLARGINE
     Dates: start: 20201216, end: 20210308
  12. MIRALAX [Concomitant]
     Active Substance: POLYETHYLENE GLYCOL 3350
     Dates: start: 20200519, end: 20210308

REACTIONS (2)
  - Lip swelling [None]
  - Angioedema [None]

NARRATIVE: CASE EVENT DATE: 20210108
